FAERS Safety Report 7960211-5 (Version None)
Quarter: 2011Q4

REPORT INFORMATION
  Report Type: 
  Country: None (occurrence: None)
  Receive Date: 20111206
  Receipt Date: 20111202
  Transmission Date: 20120403
  Serious: Yes (Life-Threatening, Hospitalization)
  Sender: FDA-Public Use
  Company Number: PHEH2011US07215

PATIENT
  Sex: Female

DRUGS (38)
  1. VITAMIN D [Concomitant]
     Dosage: 200 U, QD
     Route: 048
  2. WELLBUTRIN SR [Concomitant]
     Dosage: 150 MG, BID
     Route: 048
  3. ANUSOL HC [Concomitant]
     Dosage: 25 MG, QD
     Route: 054
  4. ALBUTEROL [Concomitant]
  5. PEPCID [Concomitant]
  6. LEVAQUIN [Concomitant]
     Dosage: 250 MG, QD
     Route: 048
  7. FLEXERIL [Concomitant]
     Dosage: 20 MG, QD, NIGHTLY
     Route: 048
  8. MUCINEX [Concomitant]
     Route: 048
  9. CARAFATE [Concomitant]
  10. PROTONIX [Concomitant]
     Dosage: 40 MG, BID
     Route: 048
  11. MINERAL OIL EMULSION [Concomitant]
  12. VICODIN [Concomitant]
  13. AMBIEN [Concomitant]
  14. MULTI-VITAMIN [Concomitant]
     Route: 048
  15. LUBIPROSTONE [Concomitant]
     Dosage: 24 UG, QD
     Route: 048
  16. MAGNESIUM SULFATE [Concomitant]
  17. ASPIRIN [Concomitant]
     Dosage: 81 MG, QD
     Route: 048
  18. PHOSLO [Concomitant]
     Dosage: 667 MG, UNK
     Route: 048
  19. SPLENIUM [Concomitant]
  20. NASONEX [Concomitant]
  21. FLUOXETINE [Concomitant]
  22. TOBI [Suspect]
     Dosage: 1 DF, BID
     Dates: start: 20110726, end: 20111006
  23. ADVAIR DISKUS 100/50 [Concomitant]
     Dosage: 1 DF, BID
  24. NEBIVOLOL HCL [Concomitant]
     Dosage: 10 MG, QD
     Route: 048
  25. ESTRADIOL [Concomitant]
     Dosage: 1 MG, QD
     Route: 048
  26. PROMETHAZINE [Concomitant]
  27. PHENERGAN [Concomitant]
  28. LIPITOR [Concomitant]
  29. BYSTOLIC [Concomitant]
  30. FLONASE [Concomitant]
     Route: 045
  31. BETA BLOCKING AGENTS [Concomitant]
  32. PERCOCET [Concomitant]
  33. LISINOPRIL [Concomitant]
  34. SPIRIVA [Concomitant]
     Dosage: 18 UG, QD
  35. PEPCID [Concomitant]
     Dosage: 40 MG, QD
     Route: 048
  36. METFORMIN HCL [Concomitant]
  37. FLUCONAZOLE [Concomitant]
  38. FAMOTIDINE [Concomitant]

REACTIONS (39)
  - RENAL FAILURE [None]
  - ABDOMINAL DISCOMFORT [None]
  - CHEST DISCOMFORT [None]
  - FLUID OVERLOAD [None]
  - DYSPNOEA PAROXYSMAL NOCTURNAL [None]
  - WHEEZING [None]
  - INTERMITTENT CLAUDICATION [None]
  - ARTHRALGIA [None]
  - ISCHAEMIA [None]
  - RENAL NECROSIS [None]
  - DYSPNOEA [None]
  - PYREXIA [None]
  - OEDEMA PERIPHERAL [None]
  - PROLONGED EXPIRATION [None]
  - DEHYDRATION [None]
  - NAUSEA [None]
  - NASAL CONGESTION [None]
  - HAEMOPTYSIS [None]
  - CONTUSION [None]
  - AORTIC ANEURYSM [None]
  - WEIGHT DECREASED [None]
  - GASTRITIS [None]
  - VENTRICULAR EXTRASYSTOLES [None]
  - CONSTIPATION [None]
  - HAEMORRHAGE [None]
  - ANAEMIA [None]
  - BLOOD CREATINE INCREASED [None]
  - ORTHOPNOEA [None]
  - PALPITATIONS [None]
  - ECCHYMOSIS [None]
  - LEFT VENTRICULAR END-DIASTOLIC PRESSURE INCREASED [None]
  - RHYTHM IDIOVENTRICULAR [None]
  - DIASTOLIC DYSFUNCTION [None]
  - ABDOMINAL PAIN [None]
  - DELIRIUM [None]
  - NIGHT SWEATS [None]
  - HAEMATURIA [None]
  - DIZZINESS [None]
  - COUGH [None]
